FAERS Safety Report 7087752-X (Version None)
Quarter: 2010Q4

REPORT INFORMATION
  Report Type: 
  Country: None (occurrence: None)
  Receive Date: 20101108
  Receipt Date: 20101026
  Transmission Date: 20110411
  Serious: No
  Sender: FDA-Public Use
  Company Number: 2010BI003277

PATIENT
  Sex: Female

DRUGS (3)
  1. TYSABRI [Suspect]
     Indication: MULTIPLE SCLEROSIS
     Route: 042
     Dates: start: 20090615
  2. BENADRYL [Concomitant]
     Indication: PREMEDICATION
     Route: 048
  3. STEROIDS (NOS) [Concomitant]
     Indication: PREMEDICATION
     Route: 048

REACTIONS (10)
  - BALANCE DISORDER [None]
  - CHEST DISCOMFORT [None]
  - COGNITIVE DISORDER [None]
  - DYSPNOEA [None]
  - FATIGUE [None]
  - FLUSHING [None]
  - HEADACHE [None]
  - INFUSION RELATED REACTION [None]
  - MULTIPLE SCLEROSIS [None]
  - THROAT IRRITATION [None]
